FAERS Safety Report 5654176-9 (Version None)
Quarter: 2008Q1

REPORT INFORMATION
  Report Type: 
  Country: None (occurrence: None)
  Receive Date: 20080306
  Receipt Date: 20080225
  Transmission Date: 20080703
  Serious: No
  Sender: FDA-Public Use
  Company Number: US-BOEHRINGER INGELHEIM GMBH, GERMANY-2007-BP-24682BP

PATIENT
  Age: 67 Year
  Sex: Female

DRUGS (6)
  1. SPIRIVA [Suspect]
     Indication: CHRONIC OBSTRUCTIVE PULMONARY DISEASE
     Route: 055
     Dates: start: 20050101
  2. TOPROL [Concomitant]
     Indication: HYPERTENSION
     Route: 048
  3. COUMADIN [Concomitant]
     Route: 048
  4. PLAVIX [Concomitant]
     Route: 048
  5. ISOSORBIDE DINITRATE [Concomitant]
     Indication: CARDIAC DISORDER
     Route: 048
  6. DIGOXIN [Concomitant]
     Route: 048

REACTIONS (1)
  - DYSPNOEA [None]
